FAERS Safety Report 16785961 (Version 1)
Quarter: 2019Q4

REPORT INFORMATION
  Report Type: Spontaneous
  Country: US (occurrence: US)
  Receive Date: 20190908
  Receipt Date: 20190908
  Transmission Date: 20200122
  Serious: Yes (Disabling)
  Sender: FDA-Public Use
  Company Number: None

PATIENT
  Age: 85 Year
  Sex: Female
  Weight: 72.9 kg

DRUGS (16)
  1. ORTHO NOVUM [Concomitant]
     Active Substance: MESTRANOL\NORETHINDRONE
  2. CENTRUM VITAMINS [Concomitant]
  3. TORSEMIDE. [Concomitant]
     Active Substance: TORSEMIDE
  4. BENADRYL [Concomitant]
     Active Substance: DIPHENHYDRAMINE HYDROCHLORIDE
  5. DIGOXIN. [Concomitant]
     Active Substance: DIGOXIN
  6. TYLENOL [Concomitant]
     Active Substance: ACETAMINOPHEN
  7. LUTEIN [Concomitant]
     Active Substance: LUTEIN
  8. IRON [Concomitant]
     Active Substance: IRON
  9. ZOCOR [Concomitant]
     Active Substance: SIMVASTATIN
  10. ELIQUIS [Concomitant]
     Active Substance: APIXABAN
  11. ZYRTEC [Concomitant]
     Active Substance: CETIRIZINE HYDROCHLORIDE
  12. CARTIA XT [Suspect]
     Active Substance: DILTIAZEM HYDROCHLORIDE
     Indication: ATRIAL FIBRILLATION
     Dosage: ?          QUANTITY:1 CAPSULE(S);?
     Route: 048
     Dates: start: 20190808, end: 20190811
  13. ZAROXYLN [Concomitant]
  14. LOPRESSOR [Concomitant]
     Active Substance: METOPROLOL TARTRATE
  15. POTASSIUM [Concomitant]
     Active Substance: POTASSIUM
  16. CALTRATE [Concomitant]
     Active Substance: CALCIUM CARBONATE

REACTIONS (2)
  - Diarrhoea [None]
  - Product odour abnormal [None]

NARRATIVE: CASE EVENT DATE: 20190810
